FAERS Safety Report 19194127 (Version 1)
Quarter: 2021Q2

REPORT INFORMATION
  Report Type: Spontaneous
  Country: US (occurrence: US)
  Receive Date: 20210429
  Receipt Date: 20210429
  Transmission Date: 20210717
  Serious: No
  Sender: FDA-Public Use
  Company Number: US-BAYER-2021-132747

PATIENT

DRUGS (2)
  1. PSYLLIUM HYDROPHILIC MUCILLOID [Suspect]
     Active Substance: PSYLLIUM HUSK
     Dosage: UNK, 2 TEASPOON
  2. MIRALAX [Suspect]
     Active Substance: POLYETHYLENE GLYCOL 3350
     Indication: GASTROINTESTINAL DISORDER
     Dosage: UNK, 2 TEASPOON DOSE
     Route: 048

REACTIONS (4)
  - Product label issue [None]
  - Pain [Unknown]
  - Product prescribing error [Unknown]
  - Abdominal pain upper [Unknown]
